FAERS Safety Report 15894036 (Version 2)
Quarter: 2019Q1

REPORT INFORMATION
  Report Type: Report from Study
  Country: None (occurrence: US)
  Receive Date: 20190131
  Receipt Date: 20190310
  Transmission Date: 20190417
  Serious: Yes (Hospitalization)
  Sender: FDA-Public Use
  Company Number: US-ABBVIE-19K-163-2643549-00

PATIENT
  Sex: Female
  Weight: 85.81 kg

DRUGS (1)
  1. HUMIRA [Suspect]
     Active Substance: ADALIMUMAB
     Indication: PSORIASIS
     Route: 058

REACTIONS (5)
  - Hypotension [Recovered/Resolved]
  - Nasopharyngitis [Not Recovered/Not Resolved]
  - Blood test abnormal [Unknown]
  - Blood potassium decreased [Recovered/Resolved]
  - Fluid imbalance [Recovered/Resolved]

NARRATIVE: CASE EVENT DATE: 2018
